FAERS Safety Report 8763872 (Version 1)
Quarter: 2012Q4

REPORT INFORMATION
  Report Type: 
  Country: BR (occurrence: BR)
  Receive Date: 20120831
  Receipt Date: 20120831
  Transmission Date: 20130627
  Serious: Yes (Death)
  Sender: FDA-Public Use
  Company Number: PHHY2012BR075278

PATIENT
  Sex: Female

DRUGS (2)
  1. DIOVAN AMLO [Suspect]
     Indication: HYPERTENSION
     Dosage: 1 big tablet in the morning and 1 small at night
     Route: 048
  2. METFORMIN [Concomitant]
     Indication: DIABETES MELLITUS
     Dosage: 1 DF, a day
     Route: 048

REACTIONS (2)
  - Cardiogenic shock [Fatal]
  - Myocardial infarction [Fatal]
